FAERS Safety Report 11569726 (Version 1)
Quarter: 2015Q3

REPORT INFORMATION
  Report Type: Spontaneous
  Country: US (occurrence: US)
  Receive Date: 20150929
  Receipt Date: 20150929
  Transmission Date: 20151125
  Serious: No
  Sender: FDA-Public Use
  Company Number: US-BAYER-2015-429065

PATIENT
  Sex: Female
  Weight: 68.93 kg

DRUGS (4)
  1. ALEVE [Suspect]
     Active Substance: NAPROXEN SODIUM
     Dosage: 1 DF, BID (220 MG TABLET, ONE ON THE MORNING AND ONE AT NIGHT)
  2. TYLENOL EXTRA STRENGTH [Suspect]
     Active Substance: ACETAMINOPHEN
     Dosage: UNK
  3. ARTHROTEC [DICLOFENAC SODIUM] [Concomitant]
     Indication: ARTHRITIS
     Dosage: 75 MG, BID
  4. MOBIC [Suspect]
     Active Substance: MELOXICAM
     Dosage: 15 MG, QD

REACTIONS (2)
  - Drug ineffective [None]
  - Pain [Not Recovered/Not Resolved]
